FAERS Safety Report 20429376 (Version 13)
Quarter: 2024Q3

REPORT INFORMATION
  Report Type: Spontaneous
  Country: CA (occurrence: CA)
  Receive Date: 20220204
  Receipt Date: 20240817
  Transmission Date: 20241016
  Serious: Yes (Other)
  Sender: CELLTRION
  Company Number: CA-CELLTRION INC.-2021CA006139

PATIENT

DRUGS (14)
  1. INFLECTRA [Suspect]
     Active Substance: INFLIXIMAB-DYYB
     Indication: Ankylosing spondylitis
     Dosage: 3 MG/KG Q 0, 2 , 6 WEEK DOSE, THEN Q 8 WEEKS
     Route: 042
  2. INFLECTRA [Suspect]
     Active Substance: INFLIXIMAB-DYYB
     Dosage: 3 MG/KG Q 0, 2 , 6 WEEK DOSE, THEN Q 8 WEEKS
     Route: 042
     Dates: start: 20210603
  3. INFLECTRA [Suspect]
     Active Substance: INFLIXIMAB-DYYB
     Dosage: 3 MG/KG Q 0, 2 , 6 WEEK DOSE, THEN Q 8 WEEKS
     Route: 042
     Dates: start: 20210615
  4. INFLECTRA [Suspect]
     Active Substance: INFLIXIMAB-DYYB
     Dosage: 3 MG/KG Q 0, 2 , 6 WEEK DOSE, THEN Q 8 WEEKS
     Route: 042
     Dates: start: 20210713
  5. INFLECTRA [Suspect]
     Active Substance: INFLIXIMAB-DYYB
     Dosage: 3 MG/KG, RE-INDUCTION Q 0, 4, 8 WEEKS, THEN EVERY 8 WEEKS
     Route: 042
     Dates: start: 20211223, end: 20211223
  6. INFLECTRA [Suspect]
     Active Substance: INFLIXIMAB-DYYB
     Dosage: 3 MG/KG, RE-INDUCTION Q 0, 4, 8 WEEKS, THEN EVERY 8 WEEKS
     Route: 042
     Dates: start: 20220125
  7. INFLECTRA [Suspect]
     Active Substance: INFLIXIMAB-DYYB
     Dosage: 3 MG/KG, RE-INDUCTION Q 0, 4, 8 WEEKS, THEN EVERY 8 WEEKS
     Route: 042
     Dates: start: 20220629
  8. INFLECTRA [Suspect]
     Active Substance: INFLIXIMAB-DYYB
     Dosage: 3 MG/KG, RE-INDUCTION Q 0, 4, 8 WEEKS, THEN EVERY 8 WEEKS
     Route: 042
     Dates: start: 20221214
  9. INFLECTRA [Suspect]
     Active Substance: INFLIXIMAB-DYYB
     Dosage: 165 MG (3 MG/KG), AFTER 18 WEEKS AND 1 DAY (RE-INDUCTION Q 0, 4, 8 WEEKS, THEN EVERY 8 WEEKS)
     Route: 042
     Dates: start: 20230420, end: 20230420
  10. INFLECTRA [Suspect]
     Active Substance: INFLIXIMAB-DYYB
     Dosage: 3 MG/KG, RE-INDUCTION Q 0, 4, 8 WEEKS, THEN EVERY 8 WEEKS
     Route: 042
     Dates: start: 20230614
  11. INFLECTRA [Suspect]
     Active Substance: INFLIXIMAB-DYYB
     Dosage: 3 MG/KG, RE-INDUCTION Q 0, 4, 8 WEEKS, THEN EVERY 8 WEEKS
     Route: 042
     Dates: start: 20230614
  12. INFLECTRA [Suspect]
     Active Substance: INFLIXIMAB-DYYB
     Dosage: 174 MG (3 MG/KG), AFTER 23 WEEKS (PRESCRIBED EVERY 8 WEEKS)
     Route: 042
     Dates: start: 20231124
  13. INFLECTRA [Suspect]
     Active Substance: INFLIXIMAB-DYYB
     Dosage: 3 MG/KG, EVERY 8 WEEKS
     Route: 042
     Dates: start: 20240314
  14. INFLECTRA [Suspect]
     Active Substance: INFLIXIMAB-DYYB
     Dosage: 3 MG/KG (165 MG), AFTER 10 WEEKS AND 4 DAYS (PRESCRIBED EVERY 8 WEEKS)
     Route: 042
     Dates: start: 20240527

REACTIONS (19)
  - Ectopic pregnancy [Recovered/Resolved]
  - Substance abuse [Not Recovered/Not Resolved]
  - Wisdom teeth removal [Unknown]
  - Treatment noncompliance [Not Recovered/Not Resolved]
  - Condition aggravated [Not Recovered/Not Resolved]
  - Blood pressure diastolic decreased [Unknown]
  - C-reactive protein increased [Unknown]
  - Red blood cell sedimentation rate increased [Recovered/Resolved]
  - Heart rate increased [Not Recovered/Not Resolved]
  - Dehydration [Unknown]
  - Fatigue [Recovered/Resolved]
  - Pain [Not Recovered/Not Resolved]
  - Menstruation irregular [Recovered/Resolved]
  - Off label use [Unknown]
  - Off label use [Unknown]
  - Off label use [Unknown]
  - Intentional product use issue [Unknown]
  - Inappropriate schedule of product administration [Unknown]
  - Product dose omission issue [Unknown]

NARRATIVE: CASE EVENT DATE: 20200309
